FAERS Safety Report 20429559 (Version 1)
Quarter: 2022Q1

REPORT INFORMATION
  Report Type: Report from Study
  Country: FR (occurrence: FR)
  Receive Date: 20220204
  Receipt Date: 20220204
  Transmission Date: 20220423
  Serious: Yes (Other)
  Sender: FDA-Public Use
  Company Number: FR-SERVIER-S19011584

PATIENT

DRUGS (8)
  1. PEGASPARGASE [Suspect]
     Active Substance: PEGASPARGASE
     Indication: Acute lymphocytic leukaemia
     Dosage: 3900 IU ON D15 AND D43
     Route: 042
     Dates: start: 20190816, end: 20190913
  2. TN UNSPECIFIED [Concomitant]
     Indication: Acute lymphocytic leukaemia
     Dosage: 2 MG ON D15, D22, AND D43
     Route: 042
     Dates: start: 20190816
  3. TN UNSPECIFIED [Concomitant]
     Indication: Acute lymphocytic leukaemia
     Dosage: 1560 MG ON D1 AND D29
     Route: 042
     Dates: start: 20190802, end: 20190830
  4. TN UNSPECIFIED [Concomitant]
     Indication: Acute lymphocytic leukaemia
     Dosage: 116 MG ON D3 TO D6, D10 TO D13, AND D31
     Route: 042
     Dates: start: 20190805, end: 20190912
  5. TN UNSPECIFIED [Concomitant]
     Dosage: 30 MG ON D3 AND D31
     Route: 037
     Dates: start: 20190805, end: 20190902
  6. TN UNSPECIFIED [Concomitant]
     Indication: Acute lymphocytic leukaemia
     Dosage: 50 MG ON D1 TO D14, AND D29 TO D42
     Route: 048
     Dates: start: 20190802, end: 20190912
  7. TN UNSPECIFIED [Concomitant]
     Indication: Acute lymphocytic leukaemia
     Dosage: 10 MG ON D3 AND D31
     Route: 037
     Dates: start: 20190805, end: 20190902
  8. TN UNSPECIFIED [Concomitant]
     Indication: Acute lymphocytic leukaemia
     Dosage: 15 MG ON D3 AND D31
     Route: 037
     Dates: start: 20190805, end: 20190902

REACTIONS (1)
  - Hyperlipidaemia [Recovered/Resolved]

NARRATIVE: CASE EVENT DATE: 20190916
